FAERS Safety Report 8484226-6 (Version None)
Quarter: 2012Q2

REPORT INFORMATION
  Report Type: 
  Country: None (occurrence: None)
  Receive Date: 20120625
  Receipt Date: 20120608
  Transmission Date: 20120825
  Serious: Yes (Other)
  Sender: FDA-Public Use
  Company Number: 2012-000913

PATIENT
  Age: 65 Year
  Sex: Female
  Weight: 64.4 kg

DRUGS (12)
  1. TRICOR /00090101/ (ADENOSINE) [Concomitant]
  2. ALPRAZOLAM [Concomitant]
  3. CLONAZEPAM [Concomitant]
  4. OXYCODONE AND ACETAMINOPHEN [Concomitant]
  5. PREDNISONE TAB [Concomitant]
  6. LUNESTA [Concomitant]
  7. VITAMIN D NOS (VITAMIN D NOS) [Concomitant]
  8. ACTONEL [Suspect]
     Dosage: 150 MG, 1/MONTH, ORAL
     Route: 048
     Dates: start: 20090126, end: 20110520
  9. VYTORIN [Concomitant]
  10. HYDROCODONE BITARTRATE [Concomitant]
  11. BACTRIM [Concomitant]
  12. CHANTIX [Concomitant]

REACTIONS (2)
  - FEMORAL NECK FRACTURE [None]
  - OSTEONECROSIS [None]
